FAERS Safety Report 11148432 (Version 1)
Quarter: 2015Q2

REPORT INFORMATION
  Report Type: Spontaneous
  Country: US (occurrence: None)
  Receive Date: 20150528
  Receipt Date: 20150528
  Transmission Date: 20150821
  Serious: Yes (Disabling, Other)
  Sender: FDA-Public Use
  Company Number: None

PATIENT
  Age: 56 Year
  Sex: Female
  Weight: 59.88 kg

DRUGS (4)
  1. EFFEXOR [Suspect]
     Active Substance: VENLAFAXINE HYDROCHLORIDE
     Indication: OBSESSIVE-COMPULSIVE DISORDER
     Dosage: 2 PILLS
     Route: 048
  2. GEODON [Concomitant]
     Active Substance: ZIPRASIDONE HYDROCHLORIDE\ZIPRASIDONE MESYLATE
  3. XANAX [Concomitant]
     Active Substance: ALPRAZOLAM
  4. LAMICTAL [Concomitant]
     Active Substance: LAMOTRIGINE

REACTIONS (9)
  - Amnesia [None]
  - Suicidal ideation [None]
  - Cognitive disorder [None]
  - Panic reaction [None]
  - Fear [None]
  - Quality of life decreased [None]
  - Drug ineffective [None]
  - Cerebral disorder [None]
  - Therapy cessation [None]
